FAERS Safety Report 6202300-1 (Version None)
Quarter: 2009Q2

REPORT INFORMATION
  Report Type: 
  Country: None (occurrence: None)
  Receive Date: 20090526
  Receipt Date: 20090519
  Transmission Date: 20091009
  Serious: No
  Sender: FDA-Public Use
  Company Number: US-B.I. PHARMACEUTICALS,INC./RIDGEFIELD-2009-BP-06286BP

PATIENT

DRUGS (4)
  1. SPIRIVA [Suspect]
     Indication: CHRONIC OBSTRUCTIVE PULMONARY DISEASE
     Dosage: 18MCG
     Route: 055
     Dates: start: 20080101
  2. ATENOLOL [Concomitant]
     Indication: CARDIAC DISORDER
     Dosage: 25MG
     Route: 048
  3. SIMVASTATIN [Concomitant]
     Indication: BLOOD CHOLESTEROL INCREASED
     Dosage: 80MG
     Route: 048
  4. AMITRIPTLINE HYDROCHLORIDE TAB [Concomitant]
     Indication: SLEEP DISORDER

REACTIONS (3)
  - CHOKING SENSATION [None]
  - COUGH [None]
  - HYPOAESTHESIA ORAL [None]
